FAERS Safety Report 20156358 (Version 2)
Quarter: 2021Q4

REPORT INFORMATION
  Report Type: Report from Study
  Country: CN (occurrence: CN)
  Receive Date: 20211207
  Receipt Date: 20211221
  Transmission Date: 20220304
  Serious: Yes (Hospitalization)
  Sender: FDA-Public Use
  Company Number: CN-EXELIXIS-XL18421046777

PATIENT
  Age: 52 Year
  Sex: Male
  Weight: 65 kg

DRUGS (4)
  1. CABOZANTINIB [Suspect]
     Active Substance: CABOZANTINIB
     Indication: Hepatocellular carcinoma
     Dosage: 40 MG, QD
     Route: 048
     Dates: start: 20211126, end: 20211129
  2. ATEZOLIZUMAB [Suspect]
     Active Substance: ATEZOLIZUMAB
     Indication: Hepatocellular carcinoma
     Dosage: 1200 MG, Q3WEEKS
     Route: 042
     Dates: start: 20211126
  3. ENTECAVIR [Concomitant]
     Active Substance: ENTECAVIR
     Dosage: UNK
     Dates: start: 20211103
  4. BICYCLOL [Concomitant]
     Active Substance: BICYCLOL
     Dosage: UNK
     Dates: start: 20211029

REACTIONS (1)
  - Duodenal ulcer [Recovering/Resolving]

NARRATIVE: CASE EVENT DATE: 20211130
